FAERS Safety Report 7804049-8 (Version None)
Quarter: 2011Q4

REPORT INFORMATION
  Report Type: 
  Country: None (occurrence: None)
  Receive Date: 20111010
  Receipt Date: 20111003
  Transmission Date: 20120403
  Serious: Yes (Other)
  Sender: FDA-Public Use
  Company Number: US-JNJFOC-20111001537

PATIENT
  Sex: Female
  Weight: 61.69 kg

DRUGS (3)
  1. SIMPONI [Suspect]
     Indication: PSORIATIC ARTHROPATHY
     Route: 058
     Dates: start: 20100101
  2. PROCARDIA XL [Concomitant]
     Indication: HYPERTENSION
     Route: 048
  3. CLONIDINE [Concomitant]
     Indication: HYPERTENSION
     Route: 048

REACTIONS (3)
  - VASCULAR RUPTURE [None]
  - VISUAL ACUITY REDUCED [None]
  - MEDICAL DEVICE COMPLICATION [None]
